FAERS Safety Report 7640805-7 (Version None)
Quarter: 2011Q3

REPORT INFORMATION
  Report Type: 
  Country: None (occurrence: None)
  Receive Date: 20110728
  Receipt Date: 20110425
  Transmission Date: 20111222
  Serious: No
  Sender: FDA-Public Use
  Company Number: US-MUTUAL PHARMACEUTICAL COMPANY, INC.-CLCY20110050

PATIENT
  Sex: Female
  Weight: 122.58 kg

DRUGS (11)
  1. ENALAPRIL MALEATE [Concomitant]
     Indication: HYPERTENSION
     Route: 048
  2. BAKING SODA [Concomitant]
     Indication: RENAL FAILURE CHRONIC
     Route: 048
  3. VITAMIN D [Concomitant]
     Indication: RENAL FAILURE CHRONIC
     Route: 048
  4. RENVELA [Suspect]
     Indication: RENAL FAILURE CHRONIC
     Route: 048
  5. AREDS [Concomitant]
     Indication: MACULAR DEGENERATION
     Route: 048
     Dates: start: 20110409
  6. CYMBALTA [Concomitant]
     Indication: DEPRESSION
     Route: 048
  7. LEVOTHYROXINE SODIUM [Concomitant]
     Indication: HYPOTHYROIDISM
     Route: 048
  8. LITHIUM CARBONATE [Concomitant]
     Indication: BIPOLAR DISORDER
     Route: 048
  9. TRAZODONE HCL [Concomitant]
     Indication: INSOMNIA
     Route: 048
  10. COLCRYS [Suspect]
     Indication: GOUT
     Route: 048
     Dates: start: 20110409
  11. ALLOPURINOL 150 MG [Concomitant]
     Indication: GOUT
     Route: 048

REACTIONS (2)
  - DRUG INEFFECTIVE [None]
  - DRUG INTERACTION [None]
